FAERS Safety Report 17300518 (Version 1)
Quarter: 2020Q1

REPORT INFORMATION
  Report Type: Spontaneous
  Country: US (occurrence: US)
  Receive Date: 20200122
  Receipt Date: 20200122
  Transmission Date: 20200409
  Serious: No
  Sender: FDA-Public Use
  Company Number: US-ALLERGAN-1942873US

PATIENT
  Age: 66 Year
  Sex: Female

DRUGS (3)
  1. BETOPTIC [Concomitant]
     Active Substance: BETAXOLOL HYDROCHLORIDE
     Route: 047
  2. LUMIGAN [Concomitant]
     Active Substance: BIMATOPROST
     Route: 047
  3. RESTASIS [Suspect]
     Active Substance: CYCLOSPORINE
     Indication: FOREIGN BODY SENSATION IN EYES
     Dosage: 2 GTT, QD
     Route: 047
     Dates: start: 20191017, end: 20191018

REACTIONS (3)
  - Off label use [Unknown]
  - Product container issue [Unknown]
  - Accidental exposure to product [Unknown]

NARRATIVE: CASE EVENT DATE: 201910
